FAERS Safety Report 25000555 (Version 1)
Quarter: 2025Q1

REPORT INFORMATION
  Report Type: Report from Study
  Country: CH (occurrence: CH)
  Receive Date: 20250222
  Receipt Date: 20250222
  Transmission Date: 20250408
  Serious: Yes (Hospitalization)
  Sender: TEVA
  Company Number: None

PATIENT
  Age: 70 Year
  Sex: Male

DRUGS (23)
  1. TORSEMIDE [Suspect]
     Active Substance: TORSEMIDE
     Indication: Product used for unknown indication
     Dosage: INDICATION UNKNOWN, TORASEMIDE MEPHA
     Route: 048
     Dates: start: 20220614, end: 20231211
  2. XARELTO [Concomitant]
     Active Substance: RIVAROXABAN
     Indication: Atrial fibrillation
     Route: 048
     Dates: start: 202007
  3. ESSIGSAURE TONERDE [Concomitant]
     Indication: Product used for unknown indication
     Dosage: LEUCEN
     Route: 061
     Dates: start: 20161122
  4. PRIMOFENAC [Concomitant]
     Indication: Product used for unknown indication
     Route: 061
     Dates: start: 20161122
  5. Redormin [Concomitant]
     Indication: Product used for unknown indication
     Route: 048
     Dates: start: 20230206
  6. ZOLPIDEM TARTRATE [Concomitant]
     Active Substance: ZOLPIDEM TARTRATE
     Indication: Product used for unknown indication
     Route: 048
     Dates: start: 20220902
  7. FIG FRUIT OIL\SORBITOL [Concomitant]
     Active Substance: FIG FRUIT OIL\SORBITOL
     Indication: Constipation
     Route: 065
     Dates: start: 20210212
  8. CHOLECALCIFEROL [Concomitant]
     Active Substance: CHOLECALCIFEROL
     Indication: Vitamin D deficiency
     Route: 048
     Dates: start: 20230106
  9. QUETIAPINE FUMARATE [Concomitant]
     Active Substance: QUETIAPINE FUMARATE
     Indication: Schizophrenia
     Route: 048
     Dates: start: 20231207
  10. PERINDOPRIL [Concomitant]
     Active Substance: PERINDOPRIL
     Indication: Product used for unknown indication
     Route: 048
     Dates: start: 20230524
  11. IMODIUM [Concomitant]
     Active Substance: LOPERAMIDE HYDROCHLORIDE
     Indication: Diarrhoea
     Route: 048
     Dates: start: 20190809
  12. MINERAL OIL [Concomitant]
     Active Substance: MINERAL OIL
     Indication: Constipation
     Route: 048
     Dates: start: 20210212
  13. NEBIDO [Concomitant]
     Active Substance: TESTOSTERONE UNDECANOATE
     Indication: Hypogonadism
     Dosage: LAST APPLICATION 20230803
     Route: 030
  14. HOMEOPATHICS [Concomitant]
     Active Substance: HOMEOPATHICS
     Indication: Dizziness
     Route: 048
     Dates: start: 20201001
  15. DUTASTERIDE\TAMSULOSIN [Concomitant]
     Active Substance: DUTASTERIDE\TAMSULOSIN
     Indication: Micturition disorder
     Route: 048
     Dates: start: 20220726
  16. BETAHISTINE [Concomitant]
     Active Substance: BETAHISTINE
     Indication: Dizziness
     Route: 048
     Dates: start: 20231201
  17. DOLOBENE [Concomitant]
     Indication: Product used for unknown indication
     Route: 061
     Dates: start: 20221121
  18. PANTOPRAZOLE SODIUM [Concomitant]
     Active Substance: PANTOPRAZOLE SODIUM
     Indication: Product used for unknown indication
     Route: 048
     Dates: start: 20230524
  19. PROSTAGUTT F [Concomitant]
     Indication: Product used for unknown indication
     Route: 048
     Dates: start: 20220725
  20. METOPROLOL [Concomitant]
     Active Substance: METOPROLOL
     Indication: Atrial fibrillation
     Route: 048
     Dates: start: 202007, end: 20231211
  21. DAFALGAN [Concomitant]
     Active Substance: ACETAMINOPHEN
     Indication: Pain
     Route: 048
     Dates: start: 20210212
  22. EXCIPIAL U LIPOLOTIO [Concomitant]
     Indication: Product used for unknown indication
     Route: 061
     Dates: start: 20161017
  23. Bioflorin [Concomitant]
     Indication: Product used for unknown indication
     Route: 048
     Dates: start: 20230605

REACTIONS (3)
  - Dizziness [Recovering/Resolving]
  - Hypovolaemia [Recovering/Resolving]
  - Hyponatraemia [Recovering/Resolving]

NARRATIVE: CASE EVENT DATE: 20231211
